FAERS Safety Report 11779225 (Version 1)
Quarter: 2015Q4

REPORT INFORMATION
  Report Type: Spontaneous
  Country: US (occurrence: US)
  Receive Date: 20151125
  Receipt Date: 20151125
  Transmission Date: 20160304
  Serious: No
  Sender: FDA-Public Use
  Company Number: US-PFIZER INC-2015406146

PATIENT
  Age: 56 Year
  Sex: Female
  Weight: 103 kg

DRUGS (7)
  1. DYAZIDE [Concomitant]
     Active Substance: HYDROCHLOROTHIAZIDE\TRIAMTERENE
     Indication: HYPERTENSION
     Dosage: 37.5-25MG, 1X/DAY
     Route: 048
     Dates: start: 2000
  2. HALDOL [Concomitant]
     Active Substance: HALOPERIDOL
     Indication: MENTAL DISORDER
     Dosage: 5 MG, 1X/DAY
     Route: 048
     Dates: start: 1992
  3. OMEGA XL [Concomitant]
     Active Substance: DIETARY SUPPLEMENT
     Dosage: 600 MG, 1X/DAY; 300MG 2 GEL CAPSULES ONCE A DAY
     Route: 048
     Dates: start: 2014
  4. WELLBUTRIN XL [Concomitant]
     Active Substance: BUPROPION HYDROCHLORIDE
     Indication: MENTAL DISORDER
     Dosage: 300 MG, 1X/DAY
     Route: 048
     Dates: start: 2000
  5. ADVIL [Suspect]
     Active Substance: IBUPROFEN
     Indication: PAIN IN EXTREMITY
     Dosage: 400 MG, EVERY 4 HRS
     Route: 048
     Dates: start: 20151120, end: 20151122
  6. PAXIL [Concomitant]
     Active Substance: PAROXETINE HYDROCHLORIDE
     Indication: MENTAL DISORDER
     Dosage: 25 MG, 1X/DAY
     Route: 048
     Dates: start: 1992
  7. CLARITIN [Concomitant]
     Active Substance: LORATADINE
     Indication: HYPERSENSITIVITY
     Dosage: UNK
     Dates: start: 201511

REACTIONS (3)
  - Muscle strain [Not Recovered/Not Resolved]
  - Overdose [Unknown]
  - Paraesthesia [Not Recovered/Not Resolved]

NARRATIVE: CASE EVENT DATE: 20151120
